FAERS Safety Report 9393128 (Version 3)
Quarter: 2013Q3

REPORT INFORMATION
  Report Type: Spontaneous
  Country: DE (occurrence: DE)
  Receive Date: 20130710
  Receipt Date: 20130820
  Transmission Date: 20140515
  Serious: Yes (Other)
  Sender: FDA-Public Use
  Company Number: DE-ELI_LILLY_AND_COMPANY-DE201306009071

PATIENT
  Age: 8 Year
  Sex: Female
  Weight: 20 kg

DRUGS (2)
  1. STRATTERA [Suspect]
     Indication: ATTENTION DEFICIT/HYPERACTIVITY DISORDER
     Dosage: 18 MG, UNKNOWN
     Route: 048
     Dates: start: 20121206
  2. PIPAMPERON [Concomitant]
     Indication: RESTLESSNESS
     Dosage: 2.5 MG, EACH EVENING
     Route: 065
     Dates: start: 20130321

REACTIONS (2)
  - Ventricular extrasystoles [Not Recovered/Not Resolved]
  - Incorrect dose administered [Unknown]
